FAERS Safety Report 4679830-7 (Version None)
Quarter: 2005Q2

REPORT INFORMATION
  Report Type: 
  Country: None (occurrence: None)
  Receive Date: 20050602
  Receipt Date: 20041102
  Transmission Date: 20051028
  Serious: No
  Sender: FDA-Public Use
  Company Number: US-GLAXOSMITHKLINE-A0532887A

PATIENT
  Sex: Male

DRUGS (1)
  1. AUGMENTIN XR [Suspect]
     Indication: INFECTION
     Route: 048

REACTIONS (3)
  - GASTRIC DISORDER [None]
  - GASTROINTESTINAL DISORDER [None]
  - MYALGIA [None]
